FAERS Safety Report 23769877 (Version 1)
Quarter: 2024Q2

REPORT INFORMATION
  Report Type: Spontaneous
  Country: US (occurrence: US)
  Receive Date: 20240422
  Receipt Date: 20240422
  Transmission Date: 20240715
  Serious: No
  Sender: FDA-Public Use
  Company Number: US-MYLANLABS-2024M1031181

PATIENT
  Sex: Male
  Weight: 81.65 kg

DRUGS (1)
  1. LATANOPROST [Suspect]
     Active Substance: LATANOPROST
     Indication: Glaucoma
     Dosage: 1 GTT DROPS, QD (APPLIED ONE DROP ON EACH EYE ONCE A DAY)
     Route: 047
     Dates: start: 20240325

REACTIONS (3)
  - Dry eye [Unknown]
  - Paraesthesia [Unknown]
  - Eye irritation [Unknown]
